FAERS Safety Report 5314916-5 (Version None)
Quarter: 2007Q2

REPORT INFORMATION
  Report Type: 
  Country: None (occurrence: None)
  Receive Date: 20070426
  Receipt Date: 20070420
  Transmission Date: 20071010
  Serious: Yes (Death)
  Sender: FDA-Public Use
  Company Number: 233159K07USA

PATIENT
  Age: 56 Year
  Sex: Female

DRUGS (1)
  1. REBIF [Suspect]
     Indication: MULTIPLE SCLEROSIS
     Dates: start: 20041220, end: 20070307

REACTIONS (4)
  - BRAIN STEM HAEMORRHAGE [None]
  - FALL [None]
  - LOSS OF CONSCIOUSNESS [None]
  - WHIPLASH INJURY [None]
